FAERS Safety Report 8803171 (Version 2)
Quarter: 2012Q4

REPORT INFORMATION
  Report Type: 
  Country: US (occurrence: US)
  Receive Date: 20120924
  Receipt Date: 20120925
  Transmission Date: 20130627
  Serious: Yes (Other)
  Sender: FDA-Public Use
  Company Number: US-UCBSA-066283

PATIENT
  Sex: Female

DRUGS (4)
  1. METOLAZONE [Suspect]
     Indication: FLUID RETENTION
     Route: 048
     Dates: start: 20120905
  2. LISINOPRIL [Concomitant]
     Indication: FLUID RETENTION
     Route: 048
     Dates: start: 2012
  3. OXYCODONE [Concomitant]
     Indication: ARTHRALGIA
     Dosage: 10 MG TABLET EVERY 5-6 HOURS AS NEEDED
     Route: 048
  4. FUROSEMIDE [Concomitant]
     Indication: FLUID RETENTION
     Route: 048
     Dates: start: 2012

REACTIONS (3)
  - Hypotension [Not Recovered/Not Resolved]
  - Hypertension [Recovered/Resolved]
  - Fluid retention [Not Recovered/Not Resolved]
